FAERS Safety Report 6741419-3 (Version None)
Quarter: 2010Q2

REPORT INFORMATION
  Report Type: 
  Country: None (occurrence: None)
  Receive Date: 20100526
  Receipt Date: 20100517
  Transmission Date: 20101027
  Serious: Yes (Other)
  Sender: FDA-Public Use
  Company Number: GA-SANOFI-AVENTIS-200613313US

PATIENT
  Age: 60 Year
  Sex: Female
  Weight: 74.54 kg

DRUGS (7)
  1. ARAVA [Suspect]
     Indication: RHEUMATOID ARTHRITIS
     Route: 048
     Dates: end: 20100101
  2. ALL OTHER THERAPEUTIC PRODUCTS [Concomitant]
  3. BENICAR HCT [Concomitant]
     Dosage: DOSE AS USED: 40/25 MG
  4. LEXAPRO [Concomitant]
  5. VITAMIN E [Concomitant]
     Dosage: DOSE AS USED: UNK
  6. FLUDARA [Concomitant]
     Dosage: THROUGH A PORT IN HER CHEST
  7. CYTOXAN [Concomitant]
     Dosage: THROUGH A PORT IN HER CHEST

REACTIONS (25)
  - ABDOMINAL DISCOMFORT [None]
  - ALOPECIA [None]
  - ARTHRALGIA [None]
  - BLOOD IMMUNOGLOBULIN G DECREASED [None]
  - BLOOD IMMUNOGLOBULIN M DECREASED [None]
  - CHRONIC LYMPHOCYTIC LEUKAEMIA [None]
  - DEPRESSION [None]
  - DIARRHOEA [None]
  - DRUG INEFFECTIVE [None]
  - FATIGUE [None]
  - FLATULENCE [None]
  - HERPES VIRUS INFECTION [None]
  - HYPERHIDROSIS [None]
  - HYPERSOMNIA [None]
  - IMMUNE SYSTEM DISORDER [None]
  - IMPAIRED HEALING [None]
  - JOINT SWELLING [None]
  - LABORATORY TEST ABNORMAL [None]
  - LYMPHOCYTOSIS [None]
  - MOUTH ULCERATION [None]
  - NEUTROPENIA [None]
  - PARAESTHESIA [None]
  - PLATELET COUNT DECREASED [None]
  - WHITE BLOOD CELL COUNT DECREASED [None]
  - WHITE BLOOD CELL COUNT INCREASED [None]
